FAERS Safety Report 9493708 (Version 3)
Quarter: 2013Q4

REPORT INFORMATION
  Report Type: Spontaneous
  Country: US (occurrence: US)
  Receive Date: 20130902
  Receipt Date: 20131101
  Transmission Date: 20140711
  Serious: Yes (Hospitalization)
  Sender: FDA-Public Use
  Company Number: US-UCBSA-094334

PATIENT
  Age: 62 Year
  Sex: Female
  Weight: 113.4 kg

DRUGS (6)
  1. CIMZIA [Suspect]
     Indication: RHEUMATOID ARTHRITIS
     Dosage: 400 MG AT WEEKS 0,2 AND 4. THEN 400 MG EVERY 4 WEEKS.
     Route: 058
     Dates: start: 20121031, end: 201306
  2. ARAVA [Concomitant]
     Indication: ARTHRITIS
  3. ARAVA [Concomitant]
     Indication: RHEUMATOID ARTHRITIS
  4. ARAVA [Concomitant]
     Indication: ARTHRITIS
  5. ARAVA [Concomitant]
     Indication: RHEUMATOID ARTHRITIS
  6. TRAMADOL [Concomitant]
     Indication: RHEUMATOID ARTHRITIS

REACTIONS (1)
  - Arthropathy [Unknown]
